FAERS Safety Report 7496510-3 (Version None)
Quarter: 2011Q2

REPORT INFORMATION
  Report Type: 
  Country: None (occurrence: None)
  Receive Date: 20110523
  Receipt Date: 20110518
  Transmission Date: 20111010
  Serious: Yes (Hospitalization)
  Sender: FDA-Public Use
  Company Number: PE-ROCHE-777839

PATIENT
  Sex: Female
  Weight: 56 kg

DRUGS (1)
  1. HERCEPTIN [Suspect]
     Indication: BREAST CANCER
     Dosage: FREQUENCY AND FORM:UNKNOWN
     Route: 042
     Dates: start: 20101101, end: 20110226

REACTIONS (2)
  - HEADACHE [None]
  - HYPOTENSION [None]
